FAERS Safety Report 8251749-4 (Version None)
Quarter: 2012Q2

REPORT INFORMATION
  Report Type: 
  Country: None (occurrence: None)
  Receive Date: 20120402
  Receipt Date: 20120320
  Transmission Date: 20120825
  Serious: Yes (Hospitalization)
  Sender: FDA-Public Use
  Company Number: PHHY2012FR025786

PATIENT
  Sex: Female

DRUGS (14)
  1. MYCOPHENOLATE MOFETIL (CELLCEPT) [Concomitant]
     Indication: RENAL TRANSPLANT
     Dosage: 750 MG, BID
  2. NEORAL [Concomitant]
     Indication: RENAL TRANSPLANT
     Dosage: UNK UKN, UNK
     Dates: end: 20111115
  3. NEORAL [Concomitant]
     Dosage: UNK UKN, UNK
  4. ATORVASTATIN [Concomitant]
     Dosage: 20 MG, UNK
  5. ESOMEPRAZOLE [Concomitant]
     Dosage: UNK UG/ML, UNK
     Dates: start: 20120106
  6. MIRCERA [Concomitant]
     Dosage: 100 UG, PER MONTH
     Dates: start: 20120106
  7. IRBESARTAN [Concomitant]
     Dosage: 150 MG, UNK
  8. VITAMIN D [Concomitant]
     Dosage: UNK UKN, UNK
  9. MIRCERA [Concomitant]
     Dosage: 75 UG, PER MONTH
  10. EZETIMIBE [Concomitant]
     Dosage: 10 MG/20 MG
     Dates: start: 20111205
  11. ATORVASTATIN [Concomitant]
     Dosage: 40 MG, UNK
  12. VITAMIN D [Concomitant]
     Dosage: UNK UKN, UNK
  13. CERTICAN [Suspect]
     Indication: RENAL TRANSPLANT
     Dosage: 1.5 MG, BID
     Dates: start: 20111107, end: 20120228
  14. CINACALCET HYDROCHLORIDE [Concomitant]
     Dosage: 60 MG, UNK

REACTIONS (15)
  - ALVEOLITIS [None]
  - RENAL FAILURE CHRONIC [None]
  - COUGH [None]
  - PYREXIA [None]
  - CARDIAC FAILURE [None]
  - OROPHARYNGEAL PAIN [None]
  - DYSPNOEA [None]
  - PLEURAL EFFUSION [None]
  - INTERSTITIAL LUNG DISEASE [None]
  - BRONCHITIS [None]
  - RHINORRHOEA [None]
  - ANAEMIA [None]
  - LUNG DISORDER [None]
  - SINUSITIS [None]
  - OEDEMA [None]
